FAERS Safety Report 6451715-5 (Version None)
Quarter: 2009Q4

REPORT INFORMATION
  Report Type: 
  Country: None (occurrence: None)
  Receive Date: 20091123
  Receipt Date: 20091110
  Transmission Date: 20100525
  Serious: Yes (Hospitalization, Other)
  Sender: FDA-Public Use
  Company Number: BE-ELI_LILLY_AND_COMPANY-BE200803004329

PATIENT
  Sex: Male

DRUGS (21)
  1. PEMETREXED [Suspect]
     Indication: NON-SMALL CELL LUNG CANCER
     Dosage: 918 MEQ, UNK
     Route: 042
     Dates: start: 20080129
  2. PEMETREXED [Suspect]
     Dosage: 918 MG, UNKNOWN
     Route: 042
     Dates: start: 20080219
  3. PEMETREXED [Suspect]
     Dosage: 903 MG, UNK
     Dates: start: 20080319, end: 20080501
  4. RADIATION [Suspect]
     Indication: NON-SMALL CELL LUNG CANCER
     Dosage: 10GY
     Route: 065
     Dates: start: 20080128, end: 20080201
  5. RADIATION [Suspect]
     Dosage: 10 GY, UNK
     Route: 065
     Dates: start: 20080204, end: 20080208
  6. RADIATION [Suspect]
     Dosage: 10 GY, UNKNOWN
     Route: 065
     Dates: start: 20080211, end: 20080215
  7. RADIATION [Suspect]
     Dosage: 10 GY, UNKNOWN
     Route: 065
     Dates: start: 20080218, end: 20080222
  8. RADIATION [Suspect]
     Dosage: 10 GY,NKNOWN
     Route: 065
     Dates: start: 20080225, end: 20080229
  9. RADIATION [Suspect]
     Dosage: 10 GY,UNKNOWN
     Route: 065
     Dates: start: 20080303, end: 20080307
  10. CISPLATIN [Suspect]
     Indication: NON-SMALL CELL LUNG CANCER
     Dosage: 135.6 MG, UNKNOWN
     Route: 065
     Dates: start: 20080319, end: 20080501
  11. VITAMIN B-12 [Concomitant]
     Indication: PROPHYLAXIS
     Dosage: 1000 UG, EVERY THREE WEEKS
     Route: 030
  12. TRAMADOL HCL [Concomitant]
     Indication: PAIN
     Dosage: 100 MG, DAILY (1/D)
     Route: 048
  13. OL-AMINE [Concomitant]
     Indication: PROPHYLAXIS
     Dosage: UNK UNK, DAILY (1/D)
     Route: 048
  14. SPIRIVA [Concomitant]
     Indication: DYSPNOEA
     Dosage: 18 UG, DAILY (1/D)
     Route: 055
  15. FORADIL [Concomitant]
     Indication: DYSPNOEA
     Dosage: 12 UG, 2/D
     Route: 055
  16. AUGMENTIN /00852501/ [Concomitant]
     Indication: LEUKOPENIA
     Dosage: UNK, UNKNOWN
     Route: 042
  17. FOLIC ACID [Concomitant]
     Indication: SUPPLEMENTATION THERAPY
  18. DEXAMETHASONE [Concomitant]
     Indication: SUPPLEMENTATION THERAPY
  19. TRANSTEC [Concomitant]
     Indication: PAIN
     Dosage: 35 UG, 3/D
  20. MOVICOL /01053601/ [Concomitant]
     Indication: LAXATIVE SUPPORTIVE CARE
     Dosage: UNK, UNKNOWN
     Route: 065
  21. STOMATOLOGICAL PREPARATIONS [Concomitant]
     Indication: PROPHYLAXIS
     Dosage: UNK, UNKNOWN
     Route: 065

REACTIONS (2)
  - OESOPHAGEAL STENOSIS [None]
  - RADIATION OESOPHAGITIS [None]
